FAERS Safety Report 21995388 (Version 7)
Quarter: 2024Q2

REPORT INFORMATION
  Report Type: Spontaneous
  Country: GB (occurrence: GB)
  Receive Date: 20230215
  Receipt Date: 20240524
  Transmission Date: 20240716
  Serious: Yes (Other)
  Sender: FDA-Public Use
  Company Number: GB-MYLANLABS-2023M1012516

PATIENT
  Age: 47 Year
  Sex: Female

DRUGS (2)
  1. CLOZARIL [Suspect]
     Active Substance: CLOZAPINE
     Indication: Schizophrenia
     Dosage: UNK
     Route: 048
     Dates: start: 20230116
  2. CLOZARIL [Suspect]
     Active Substance: CLOZAPINE
     Dosage: UNK
     Route: 048
     Dates: start: 20240410

REACTIONS (13)
  - Eosinophil count increased [Recovering/Resolving]
  - Coeliac disease [Unknown]
  - Neuroleptic malignant syndrome [Unknown]
  - Pulmonary eosinophilia [Unknown]
  - Inflammatory bowel disease [Unknown]
  - Haematocrit decreased [Unknown]
  - Connective tissue disorder [Unknown]
  - Hypersensitivity [Unknown]
  - Differential white blood cell count abnormal [Not Recovered/Not Resolved]
  - Red cell distribution width increased [Unknown]
  - Infection parasitic [Unknown]
  - Atopy [Unknown]
  - Treatment noncompliance [Unknown]

NARRATIVE: CASE EVENT DATE: 20230202
